FAERS Safety Report 24131841 (Version 2)
Quarter: 2024Q3

REPORT INFORMATION
  Report Type: Spontaneous
  Country: CN (occurrence: CN)
  Receive Date: 20240724
  Receipt Date: 20240819
  Transmission Date: 20241016
  Serious: Yes (Death)
  Sender: TEVA
  Company Number: CN-TEVA-VS-3222691

PATIENT
  Age: 77 Year
  Sex: Male

DRUGS (11)
  1. CLOPIDOGREL [Suspect]
     Active Substance: CLOPIDOGREL BISULFATE
     Indication: Immunoglobulin G4 related disease
     Route: 065
     Dates: start: 2022
  2. ASPIRIN [Suspect]
     Active Substance: ASPIRIN
     Indication: Immunoglobulin G4 related disease
     Route: 065
     Dates: start: 2021, end: 2022
  3. ASPIRIN [Suspect]
     Active Substance: ASPIRIN
     Indication: Immunoglobulin G4 related disease
     Route: 065
     Dates: start: 2022
  4. CEFTRIAXONE [Concomitant]
     Active Substance: CEFTRIAXONE\CEFTRIAXONE SODIUM
     Indication: Antibiotic therapy
     Route: 065
     Dates: start: 2022
  5. LIDOCAINE [Suspect]
     Active Substance: LIDOCAINE
     Indication: Resuscitation
     Route: 065
     Dates: start: 2022
  6. EPINEPHRINE [Suspect]
     Active Substance: EPINEPHRINE
     Indication: Resuscitation
     Route: 065
     Dates: start: 2022
  7. ATORVASTATIN [Suspect]
     Active Substance: ATORVASTATIN
     Indication: Immunoglobulin G4 related disease
     Dosage: EVERY NIGHT
     Route: 065
     Dates: start: 2022
  8. MYCOPHENOLATE MOFETIL [Concomitant]
     Active Substance: MYCOPHENOLATE MOFETIL
     Indication: Immunoglobulin G4 related disease
     Route: 065
     Dates: start: 2021
  9. PREDNISONE [Suspect]
     Active Substance: PREDNISONE
     Indication: Immunoglobulin G4 related disease
     Route: 065
     Dates: start: 2022
  10. PREDNISONE [Suspect]
     Active Substance: PREDNISONE
     Indication: Immunoglobulin G4 related disease
     Route: 065
     Dates: start: 2021
  11. PREDNISONE [Suspect]
     Active Substance: PREDNISONE
     Indication: Immunoglobulin G4 related disease
     Route: 065
     Dates: start: 2021

REACTIONS (3)
  - Drug ineffective [Fatal]
  - Occult blood positive [Unknown]
  - Anaemia [Unknown]

NARRATIVE: CASE EVENT DATE: 20220101
